FAERS Safety Report 9656975 (Version 1)
Quarter: 2013Q4

REPORT INFORMATION
  Report Type: Spontaneous
  Country: NL (occurrence: NL)
  Receive Date: 20131030
  Receipt Date: 20131030
  Transmission Date: 20140711
  Serious: Yes (Life-Threatening)
  Sender: FDA-Public Use
  Company Number: NL-PFIZER INC-2013306738

PATIENT
  Age: 46 Year
  Sex: Male
  Weight: 82 kg

DRUGS (1)
  1. CHAMPIX [Suspect]
     Indication: SMOKING CESSATION THERAPY
     Dosage: 1 DF, 2X/DAY
     Dates: start: 20120101, end: 20121007

REACTIONS (1)
  - Gene mutation [Not Recovered/Not Resolved]
